FAERS Safety Report 9701089 (Version 1)
Quarter: 2013Q4

REPORT INFORMATION
  Report Type: Spontaneous
  Country: US (occurrence: US)
  Receive Date: 20131121
  Receipt Date: 20131121
  Transmission Date: 20140711
  Serious: No
  Sender: FDA-Public Use
  Company Number: US-BAXTER-2013BAX045597

PATIENT
  Age: 5 Year
  Sex: Male

DRUGS (5)
  1. BEBULIN [Suspect]
     Indication: FACTOR IX DEFICIENCY
  2. RITUXIMAB [Concomitant]
     Indication: FACTOR IX DEFICIENCY
     Dosage: 94 DOSES
  3. MYCOPHENOLATE MOFETIL [Concomitant]
     Indication: FACTOR IX DEFICIENCY
     Dosage: 950 DAYS
  4. DEXAMETHASONE [Concomitant]
     Indication: FACTOR IX DEFICIENCY
     Dosage: DIVIDED BID FOR 4 DAYS IN WEEK 2, 4 AND 7
  5. IMMUNOGLOBULIN [Concomitant]
     Indication: FACTOR IX DEFICIENCY
     Dosage: 1 G/KG DAY 9, 2 DOSES WITH EACH DEXAMETHASONE PULSE
     Route: 042

REACTIONS (1)
  - Hypersensitivity [Recovered/Resolved]
